FAERS Safety Report 10968841 (Version 1)
Quarter: 2015Q1

REPORT INFORMATION
  Report Type: Spontaneous
  Country: UG (occurrence: UG)
  Receive Date: 20150331
  Receipt Date: 20150331
  Transmission Date: 20150721
  Serious: Yes (Other)
  Sender: FDA-Public Use
  Company Number: UG-CIPLA LTD.-2015UG02501

PATIENT

DRUGS (5)
  1. LAMIVUDINE. [Suspect]
     Active Substance: LAMIVUDINE
     Indication: HIV TEST POSITIVE
  2. CAPTOPRIL. [Concomitant]
     Active Substance: CAPTOPRIL
  3. NEVIRAPINE. [Suspect]
     Active Substance: NEVIRAPINE
     Indication: HIV TEST POSITIVE
     Dosage: UNK
  4. TENOFOVIR DISOPROXIL FUMARATE [Suspect]
     Active Substance: TENOFOVIR DISOPROXIL FUMARATE
     Indication: HIV TEST POSITIVE
  5. NIFEDIPINE. [Concomitant]
     Active Substance: NIFEDIPINE

REACTIONS (3)
  - Protein urine [Recovering/Resolving]
  - Blood creatinine increased [Recovering/Resolving]
  - Glucose urine present [Recovering/Resolving]
